FAERS Safety Report 5689433-3 (Version None)
Quarter: 2008Q1

REPORT INFORMATION
  Report Type: 
  Country: None (occurrence: None)
  Receive Date: 20080328
  Receipt Date: 20080320
  Transmission Date: 20080703
  Serious: Yes (Other)
  Sender: FDA-Public Use
  Company Number: OSCN-PR-0803L-0165

PATIENT
  Age: 58 Year
  Sex: 0

DRUGS (2)
  1. OMNISCAN [Suspect]
     Indication: DRUG USE FOR UNKNOWN INDICATION
     Dosage: 0.12 MMOL/KG, SINGLE DOSE, I.V. SINGLE DOSE
     Route: 042
  2. VANCOMYCIN [Concomitant]

REACTIONS (2)
  - HAEMODIALYSIS [None]
  - NEPHROGENIC SYSTEMIC FIBROSIS [None]
